FAERS Safety Report 13763613 (Version 1)
Quarter: 2017Q3

REPORT INFORMATION
  Report Type: Spontaneous
  Country: CZ (occurrence: CZ)
  Receive Date: 20170718
  Receipt Date: 20170718
  Transmission Date: 20171127
  Serious: Yes (Life-Threatening, Other)
  Sender: FDA-Public Use
  Company Number: CZ-MYLANLABS-2017M1040670

PATIENT
  Age: 73 Year
  Sex: Female
  Weight: 44 kg

DRUGS (7)
  1. GALANTAMIN MYLAN 8 MG [Suspect]
     Active Substance: GALANTAMINE HYDROBROMIDE
     Dosage: 16 MG/DAY
     Route: 048
     Dates: end: 20170605
  2. TIAPRID PMCS [Concomitant]
     Route: 048
  3. PRESTARIUM NEO [Concomitant]
     Active Substance: PERINDOPRIL ARGININE
     Route: 048
  4. DERIN [Concomitant]
     Route: 048
     Dates: start: 20170602
  5. LETROX [Concomitant]
     Active Substance: LEVOTHYROXINE SODIUM
     Route: 048
  6. GODASAL 100 [Concomitant]
     Route: 048
  7. BETALOC ZOK [Concomitant]
     Active Substance: METOPROLOL SUCCINATE
     Route: 048

REACTIONS (2)
  - Clonic convulsion [Recovered/Resolved]
  - Epilepsy [Recovered/Resolved]

NARRATIVE: CASE EVENT DATE: 20170605
